FAERS Safety Report 6661853-X (Version None)
Quarter: 2010Q1

REPORT INFORMATION
  Report Type: 
  Country: None (occurrence: None)
  Receive Date: 20100331
  Receipt Date: 20090812
  Transmission Date: 20100710
  Serious: No
  Sender: FDA-Public Use
  Company Number: US-BRISTOL-MYERS SQUIBB COMPANY-14738165

PATIENT
  Age: 70 Year
  Sex: Male
  Weight: 66 kg

DRUGS (4)
  1. ERBITUX [Suspect]
     Indication: HEAD AND NECK CANCER
     Dosage: LOADING DOSE OF ERBITUX 724MG IV (400MG/M2) WEEKLY DOSE OF ERBITUX 453MG IV (250MG/M2 7 DOSES
     Route: 042
     Dates: start: 20090624
  2. LOTENSIN [Concomitant]
  3. ZOCOR [Concomitant]
  4. BENADRYL [Concomitant]
     Indication: PREMEDICATION
     Route: 042

REACTIONS (2)
  - CONJUNCTIVITIS [None]
  - DERMATITIS ACNEIFORM [None]
